FAERS Safety Report 7351970-3 (Version None)
Quarter: 2011Q1

REPORT INFORMATION
  Report Type: 
  Country: None (occurrence: None)
  Receive Date: 20110315
  Receipt Date: 20110308
  Transmission Date: 20110831
  Serious: No
  Sender: FDA-Public Use
  Company Number: US-PFIZER INC-2011050504

PATIENT
  Age: 62 Year
  Sex: Female

DRUGS (1)
  1. AMIODARONE HCL [Suspect]
     Indication: CARDIAC FAILURE CONGESTIVE
     Dosage: UNK
     Dates: start: 20110201

REACTIONS (5)
  - DYSPEPSIA [None]
  - DYSPNOEA [None]
  - CHEST DISCOMFORT [None]
  - NERVOUSNESS [None]
  - DIZZINESS [None]
